FAERS Safety Report 9288941 (Version 1)
Quarter: 2013Q2

REPORT INFORMATION
  Report Type: Spontaneous
  Country: GB (occurrence: GB)
  Receive Date: 20130514
  Receipt Date: 20130514
  Transmission Date: 20140414
  Serious: Yes (Other)
  Sender: FDA-Public Use
  Company Number: GB-GLAXOSMITHKLINE-B0889288A

PATIENT
  Age: 58 Year
  Sex: Female
  Weight: 69 kg

DRUGS (10)
  1. LAMOTRIGINE [Suspect]
     Indication: EPILEPSY
     Dosage: 200MG PER DAY
     Route: 048
     Dates: start: 20060620, end: 20130228
  2. FOLIC ACID [Concomitant]
  3. SENNA [Concomitant]
  4. PROCYCLIDINE [Concomitant]
  5. EPILIM CHRONO [Concomitant]
  6. HALOPERIDOL [Concomitant]
  7. CALCIUM + VITAMIN D3 [Concomitant]
  8. TRIFLUOPERAZINE [Concomitant]
  9. AVEENO [Concomitant]
  10. LOTRIDERM [Concomitant]

REACTIONS (3)
  - Vasculitic rash [Recovered/Resolved]
  - Purpura [Unknown]
  - Skin ulcer [Unknown]
